FAERS Safety Report 24820081 (Version 1)
Quarter: 2025Q1

REPORT INFORMATION
  Report Type: Spontaneous
  Country: US (occurrence: None)
  Receive Date: 20250108
  Receipt Date: 20250108
  Transmission Date: 20250408
  Serious: No
  Sender: FDA-CTU
  Company Number: None

PATIENT
  Age: 57 Year
  Sex: Female
  Weight: 111.15 kg

DRUGS (7)
  1. EMGALITY [Suspect]
     Active Substance: GALCANEZUMAB-GNLM
     Indication: Migraine
     Route: 030
     Dates: start: 20241116
  2. VALSARTAN [Concomitant]
     Active Substance: VALSARTAN
  3. metroplol [Concomitant]
  4. nortriptylne [Concomitant]
  5. EXCEDRIN MIGRAINE [Concomitant]
     Active Substance: ACETAMINOPHEN\ASPIRIN\CAFFEINE
  6. MAGNESIUM [Concomitant]
     Active Substance: MAGNESIUM
  7. VITAMIN D [Concomitant]
     Active Substance: VITAMIN D NOS

REACTIONS (7)
  - Ocular hyperaemia [None]
  - Eye pruritus [None]
  - Eye irritation [None]
  - Pruritus [None]
  - Urticaria [None]
  - Eye pain [None]
  - Ocular discomfort [None]

NARRATIVE: CASE EVENT DATE: 20250107
